FAERS Safety Report 7520192-5 (Version None)
Quarter: 2011Q2

REPORT INFORMATION
  Report Type: 
  Country: None (occurrence: None)
  Receive Date: 20110602
  Receipt Date: 20110513
  Transmission Date: 20111010
  Serious: Yes (Hospitalization)
  Sender: FDA-Public Use
  Company Number: US-AMGEN-QUU404037

PATIENT
  Age: 18 Month
  Sex: Female

DRUGS (10)
  1. METRONIDAZOLE [Concomitant]
     Dosage: UNK UNK, UNK
  2. CAPTOPRIL [Concomitant]
     Dosage: UNK UNK, UNK
  3. SENSIPAR [Concomitant]
     Indication: RENAL FAILURE CHRONIC
     Dosage: 30 MG, 3 TIMES/WK
  4. ALBUTEROL SULFATE [Concomitant]
     Dosage: UNK UNK, UNK
  5. LEVOCARNITINE [Concomitant]
     Dosage: UNK UNK, UNK
  6. ACETAMINOPHEN [Concomitant]
     Dosage: UNK UNK, UNK
  7. ARANESP [Suspect]
     Indication: RENAL FAILURE CHRONIC
     Dosage: 60 A?G, QWK
  8. LEVETIRACETAM [Concomitant]
     Dosage: UNK UNK, UNK
  9. OMEPRAZOLE [Concomitant]
     Dosage: UNK UNK, UNK
  10. CALCITRIOL [Concomitant]
     Dosage: UNK UNK, UNK

REACTIONS (1)
  - THERAPEUTIC RESPONSE DECREASED [None]
